FAERS Safety Report 6408588 (Version 5)
Quarter: 2020Q3

REPORT INFORMATION
  Report Type: Report from Study
  Country: JP (occurrence: JP)
  Receive Date: 20070907
  Receipt Date: 20080724
  Transmission Date: 20201105
  Serious: Yes (Hospitalization)
  Sender: FDA-Public Use
  Company Number: JP-ROCHE-513985

PATIENT
  Age: 64 Year
  Sex: Female
  Weight: 60.5 kg

DRUGS (7)
  1. LOXOPROFEN SODIUM [Concomitant]
     Active Substance: LOXOPROFEN SODIUM
     Dosage: DRUG NAME REPORTED AS LOXOPROFEN SODIUM HYDRATE.
     Dates: start: 20061118, end: 20070428
  2. DILTIAZEM HYDROCHLORIDE. [Concomitant]
     Active Substance: DILTIAZEM HYDROCHLORIDE
     Dates: start: 20070604
  3. PLACEBO [Suspect]
     Active Substance: UNSPECIFIED INGREDIENT
     Indication: OSTEOPOROSIS
     Dosage: FREQUENCY ? DAILY.
     Route: 048
     Dates: start: 20070621, end: 20070829
  4. CALCIUM [Concomitant]
     Active Substance: CALCIUM
     Dates: start: 20070620, end: 20070828
  5. IBANDRONIC ACID. [Suspect]
     Active Substance: IBANDRONIC ACID
     Indication: OSTEOPOROSIS
     Dosage: FORM REPORTED AS INFUSION.
     Route: 042
     Dates: start: 20070620, end: 20070824
  6. BISOPROLOL FUMARATE. [Concomitant]
     Active Substance: BISOPROLOL FUMARATE
     Dates: start: 20070604
  7. TEPRENONE [Concomitant]
     Active Substance: TEPRENONE
     Dates: start: 20061118, end: 20070428

REACTIONS (1)
  - Osteonecrosis [Recovering/Resolving]

NARRATIVE: CASE EVENT DATE: 20070817
